FAERS Safety Report 8379577-X (Version None)
Quarter: 2012Q1

REPORT INFORMATION
  Report Type: 
  Country: None (occurrence: None)
  Receive Date: 20120323
  Receipt Date: 20110502
  Transmission Date: 20120608
  Serious: Yes (Hospitalization, Other)
  Sender: FDA-Public Use
  Company Number: 163-21880-11033143

PATIENT
  Sex: Male

DRUGS (2)
  1. REVLIMID [Suspect]
     Indication: MULTIPLE MYELOMA
     Dosage: 5 MG, QD, PO; 5 MG, EVERY 3RD DAY, PO
     Route: 048
     Dates: start: 20101216
  2. LOTREL [Concomitant]

REACTIONS (2)
  - RENAL FAILURE ACUTE [None]
  - DIARRHOEA [None]
